FAERS Safety Report 6385319-X (Version None)
Quarter: 2009Q4

REPORT INFORMATION
  Report Type: 
  Country: None (occurrence: None)
  Receive Date: 20091002
  Receipt Date: 20080805
  Transmission Date: 20100525
  Serious: No
  Sender: FDA-Public Use
  Company Number: US-ASTRAZENECA-2008UW15903

PATIENT
  Age: 55 Year
  Sex: Female
  Weight: 74.8 kg

DRUGS (6)
  1. ARIMIDEX [Suspect]
     Indication: BREAST CANCER
     Route: 048
     Dates: start: 20060101
  2. SYNTHROID [Concomitant]
  3. OXYCONTIN [Concomitant]
  4. NEURONTIN [Concomitant]
  5. KEPPRA [Concomitant]
  6. GABITRIL [Concomitant]

REACTIONS (3)
  - HOT FLUSH [None]
  - NIGHT SWEATS [None]
  - OESTRADIOL INCREASED [None]
